FAERS Safety Report 4465280-5 (Version None)
Quarter: 2004Q4

REPORT INFORMATION
  Report Type: 
  Country: None (occurrence: None)
  Receive Date: 20041001
  Receipt Date: 20041001
  Transmission Date: 20050328
  Serious: No
  Sender: FDA-Public Use
  Company Number: None

PATIENT
  Age: 24 Year
  Sex: Male
  Weight: 89.8122 kg

DRUGS (2)
  1. ZANTAC [Suspect]
     Indication: MULTIPLE ALLERGIES
  2. ZANTAC [Suspect]
     Indication: RHINITIS

REACTIONS (1)
  - PHARMACEUTICAL PRODUCT COMPLAINT [None]
